FAERS Safety Report 23737663 (Version 1)
Quarter: 2024Q2

REPORT INFORMATION
  Report Type: Spontaneous
  Country: US (occurrence: None)
  Receive Date: 20240412
  Receipt Date: 20240412
  Transmission Date: 20240716
  Serious: Yes (Death)
  Sender: FDA-Public Use
  Company Number: None

PATIENT
  Age: 18 Month
  Sex: Male

DRUGS (6)
  1. PERTZYE [Suspect]
     Active Substance: PANCRELIPASE AMYLASE\PANCRELIPASE LIPASE\PANCRELIPASE PROTEASE
     Indication: Gastrointestinal disorder
     Dosage: OTHER FREQUENCY : SIX TIMES DAILY;?OTHER ROUTE : G-TUBE;?
     Route: 050
     Dates: start: 20230127, end: 20231217
  2. CREON [Suspect]
     Active Substance: PANCRELIPASE AMYLASE\PANCRELIPASE LIPASE\PANCRELIPASE PROTEASE
     Dosage: OTHER QUANTITY : G 1 C GTUBE;?OTHER FREQUENCY : 6 TIMES DAILY;?OTHER ROUTE : G-TUBE;?
     Route: 050
     Dates: start: 20231016
  3. FAMOTIDINE [Concomitant]
     Active Substance: FAMOTIDINE
  4. FLUDROCORTISONE [Concomitant]
     Active Substance: FLUDROCORTISONE
  5. HYDROCORTISONE [Concomitant]
     Active Substance: HYDROCORTISONE
  6. OMEPRAZOLE [Concomitant]
     Active Substance: OMEPRAZOLE

REACTIONS (1)
  - Cardio-respiratory arrest [None]

NARRATIVE: CASE EVENT DATE: 20231217
